FAERS Safety Report 8617752-7 (Version None)
Quarter: 2012Q3

REPORT INFORMATION
  Report Type: 
  Country: None (occurrence: None)
  Receive Date: 20120824
  Receipt Date: 20120626
  Transmission Date: 20120928
  Serious: No
  Sender: FDA-Public Use
  Company Number: US-009507513-1207USA007077

PATIENT

DRUGS (3)
  1. LOTRIMIN ULTRA [Suspect]
     Indication: MEDICAL OBSERVATION
  2. SIMVASTATIN [Concomitant]
     Indication: PRODUCT USED FOR UNKNOWN INDICATION
     Dosage: 20 MG, UNKNOWN
  3. LOTRIMIN ULTRA [Suspect]
     Indication: PRURITUS
     Dosage: BID
     Route: 061
     Dates: start: 20120505, end: 20120520

REACTIONS (3)
  - SKIN IRRITATION [None]
  - CONDITION AGGRAVATED [None]
  - DRUG INEFFECTIVE [None]
